FAERS Safety Report 23361305 (Version 6)
Quarter: 2024Q1

REPORT INFORMATION
  Report Type: Spontaneous
  Country: PL (occurrence: PL)
  Receive Date: 20240103
  Receipt Date: 20240223
  Transmission Date: 20240409
  Serious: Yes (Hospitalization)
  Sender: FDA-Public Use
  Company Number: PL-GEN-2023-1994

PATIENT
  Age: 58 Year
  Sex: Female

DRUGS (10)
  1. OMEPRAZOLE [Interacting]
     Active Substance: OMEPRAZOLE
     Indication: Abdominal pain
     Dosage: 40 MILLIGRAM, QD (40 MG/DAY)
     Route: 065
  2. ESCITALOPRAM [Interacting]
     Active Substance: ESCITALOPRAM OXALATE
     Indication: Depression
     Dosage: 10 MILLIGRAM, QD (10 MG/DAY)
     Route: 065
  3. DROTAVERINE HYDROCHLORIDE [Suspect]
     Active Substance: DROTAVERINE HYDROCHLORIDE
     Indication: Abdominal pain
     Dosage: UNK
     Route: 048
  4. BUTYLSCOPOLAMINE BROMIDE [Concomitant]
     Active Substance: BUTYLSCOPOLAMINE BROMIDE
     Indication: Abdominal pain
     Dosage: UNK
     Route: 048
  5. RIVAROXABAN [Concomitant]
     Active Substance: RIVAROXABAN
     Indication: Atrial fibrillation
     Dosage: 20 MILLIGRAM, QD (1 X 20 MG ORALLY)
     Route: 048
  6. METOPROLOL [Concomitant]
     Active Substance: METOPROLOL
     Indication: Atrial fibrillation
     Dosage: 100 MILLIGRAM, QD (2 X 50 MG) 2 DOSAGE FORM
     Route: 048
  7. METOPROLOL [Concomitant]
     Active Substance: METOPROLOL
     Dosage: 50 MG TWICE A DAY
     Route: 048
  8. PROPAFENONE [Concomitant]
     Active Substance: PROPAFENONE
     Indication: Atrial fibrillation
     Dosage: 150 MG THREE TIMES A DAY
     Route: 048
  9. PROPAFENONE [Concomitant]
     Active Substance: PROPAFENONE
     Dosage: 150 MILLIGRAM, QD
     Route: 048
  10. PROPAFENONE [Concomitant]
     Active Substance: PROPAFENONE
     Dosage: 3 DOSAGE FORM, QD
     Route: 048

REACTIONS (8)
  - Abdominal pain [Recovered/Resolved]
  - Drug interaction [Recovered/Resolved]
  - Drug ineffective [Unknown]
  - Abdominal rigidity [Recovered/Resolved]
  - Pain [Recovered/Resolved]
  - Wrong product administered [Unknown]
  - Contraindicated product administered [Unknown]
  - Medication error [Unknown]
